FAERS Safety Report 18820529 (Version 1)
Quarter: 2021Q1

REPORT INFORMATION
  Report Type: Spontaneous
  Country: FR (occurrence: FR)
  Receive Date: 20210202
  Receipt Date: 20210202
  Transmission Date: 20210419
  Serious: Yes (Hospitalization)
  Sender: FDA-Public Use
  Company Number: FR-ELI_LILLY_AND_COMPANY-FR202101010872

PATIENT
  Age: 63 Year
  Sex: Male
  Weight: 62 kg

DRUGS (2)
  1. CISPLATINE MYLAN [Suspect]
     Active Substance: CISPLATIN
     Indication: LUNG ADENOCARCINOMA
     Dosage: 75 MG/M2, CYCLICAL (EVERY 21 DAYS)
     Route: 042
     Dates: start: 20200806, end: 20201008
  2. ALIMTA [Suspect]
     Active Substance: PEMETREXED DISODIUM
     Indication: LUNG ADENOCARCINOMA
     Dosage: 500 MG/M2, CYCLICAL (EVERY 21 DAYS)
     Route: 042
     Dates: start: 20200806, end: 20201030

REACTIONS (2)
  - Renal tubular necrosis [Not Recovered/Not Resolved]
  - Acute kidney injury [Not Recovered/Not Resolved]

NARRATIVE: CASE EVENT DATE: 20201030
